FAERS Safety Report 7733925-X (Version None)
Quarter: 2011Q3

REPORT INFORMATION
  Report Type: 
  Country: None (occurrence: None)
  Receive Date: 20110907
  Receipt Date: 20110726
  Transmission Date: 20111222
  Serious: No
  Sender: FDA-Public Use
  Company Number: US-BAYER-2011-066996

PATIENT
  Age: 23 Year
  Sex: Female
  Weight: 52 kg

DRUGS (1)
  1. ALEVE (CAPLET) [Suspect]
     Indication: DYSMENORRHOEA
     Dosage: UNK
     Route: 048

REACTIONS (1)
  - VOMITING [None]
